FAERS Safety Report 15103082 (Version 1)
Quarter: 2018Q3

REPORT INFORMATION
  Report Type: Spontaneous
  Country: US (occurrence: US)
  Receive Date: 20180703
  Receipt Date: 20180703
  Transmission Date: 20181010
  Serious: Yes (Other)
  Sender: FDA-Public Use
  Company Number: US-BRISTOL-MYERS SQUIBB COMPANY-BMS-2018-058424

PATIENT
  Age: 42 Year
  Sex: Male

DRUGS (6)
  1. IPILIMUMAB [Suspect]
     Active Substance: IPILIMUMAB
     Indication: METASTATIC MALIGNANT MELANOMA
     Route: 065
  2. CYCLOPHOSPHAMIDE ANHYDROUS. [Suspect]
     Active Substance: CYCLOPHOSPHAMIDE ANHYDROUS
     Indication: METASTATIC MALIGNANT MELANOMA
     Route: 065
  3. FLUDARABINE [Suspect]
     Active Substance: FLUDARABINE PHOSPHATE
     Indication: METASTATIC MALIGNANT MELANOMA
     Route: 065
  4. INTERLEUKIN?2 [Suspect]
     Active Substance: ALDESLEUKIN
     Indication: METASTATIC MALIGNANT MELANOMA
     Dosage: 1 DF, Q8H, 1 DF=72,000 U/KG
     Route: 042
  5. INTERLEUKIN?2 [Suspect]
     Active Substance: ALDESLEUKIN
     Indication: PRODUCT USED FOR UNKNOWN INDICATION
     Dosage: 1 DF, Q8H, 1 DF=600,000 IU/KG OVER
     Route: 065
  6. PEMBROLIZUMAB. [Suspect]
     Active Substance: PEMBROLIZUMAB
     Indication: METASTATIC MALIGNANT MELANOMA
     Route: 065

REACTIONS (3)
  - Rhabdomyolysis [Recovered/Resolved]
  - Vitiligo [Unknown]
  - Malignant neoplasm progression [Unknown]
